FAERS Safety Report 24944216 (Version 1)
Quarter: 2025Q1

REPORT INFORMATION
  Report Type: Report from Study
  Country: CA (occurrence: CA)
  Receive Date: 20250207
  Receipt Date: 20250207
  Transmission Date: 20250409
  Serious: Yes (Other)
  Sender: ABBVIE
  Company Number: CA-ABBVIE-6122950

PATIENT
  Age: 63 Year
  Sex: Female

DRUGS (1)
  1. BOTOX [Suspect]
     Active Substance: ONABOTULINUMTOXINA
     Indication: Migraine
     Route: 065
     Dates: start: 20220224, end: 20220224

REACTIONS (4)
  - Lung neoplasm malignant [Recovered/Resolved]
  - Lung neoplasm malignant [Unknown]
  - Anxiety [Unknown]
  - Migraine [Unknown]

NARRATIVE: CASE EVENT DATE: 20220101
